FAERS Safety Report 20834364 (Version 2)
Quarter: 2022Q3

REPORT INFORMATION
  Report Type: Report from Study
  Country: TR (occurrence: TR)
  Receive Date: 20220516
  Receipt Date: 20220705
  Transmission Date: 20221027
  Serious: Yes (Life-Threatening, Hospitalization)
  Sender: FDA-Public Use
  Company Number: TR-BAYER-2018-245086

PATIENT
  Age: 96 Year
  Sex: Female
  Weight: 79 kg

DRUGS (10)
  1. COPANLISIB [Suspect]
     Active Substance: COPANLISIB
     Indication: Non-Hodgkin^s lymphoma
     Dosage: 3 WEEKS ON / 1 WEEK OFF
     Dates: start: 20181224, end: 20181224
  2. RITUXIMAB [Suspect]
     Active Substance: RITUXIMAB
     Indication: Non-Hodgkin^s lymphoma
     Dosage: 694 MG
     Route: 042
     Dates: start: 20181224, end: 20181224
  3. BENDAMUSTINE [Suspect]
     Active Substance: BENDAMUSTINE
     Indication: Non-Hodgkin^s lymphoma
     Dosage: 167 MG
     Route: 042
     Dates: start: 20181224, end: 20181224
  4. VASTAREL [Concomitant]
     Active Substance: TRIMETAZIDINE DIHYDROCHLORIDE
     Indication: Hypertension
     Dosage: 45 MG, BID
     Route: 048
     Dates: start: 2012
  5. DIOVAN [Concomitant]
     Active Substance: VALSARTAN
     Indication: Hypertension
     Dosage: 320 MG, BID
     Route: 048
     Dates: start: 2010
  6. PIRACETAM [Concomitant]
     Active Substance: PIRACETAM
     Indication: Amnesia
     Dosage: 800 MG, BID
     Route: 048
     Dates: start: 2010
  7. AVIL [PHENIRAMINE MALEATE] [Concomitant]
     Indication: Premedication
     Dosage: 45.5 ML/2ML
     Route: 042
     Dates: start: 20181224, end: 20181224
  8. PREDNOL L [Concomitant]
     Indication: Premedication
     Dosage: 40 MG
     Route: 042
     Dates: start: 20181224, end: 20181224
  9. NORVASC [Concomitant]
     Active Substance: AMLODIPINE BESYLATE
     Indication: Hypertension
     Dosage: 10 MG
     Route: 048
     Dates: start: 20181224, end: 20181224
  10. METOPROLOL SUCCINATE [Concomitant]
     Active Substance: METOPROLOL SUCCINATE
     Indication: Hypertension
     Dosage: 25 MG, QD
     Route: 048
     Dates: start: 20190130

REACTIONS (1)
  - Hyperglycaemia [Recovering/Resolving]

NARRATIVE: CASE EVENT DATE: 20181224
